FAERS Safety Report 9765735 (Version 1)
Quarter: 2013Q4

REPORT INFORMATION
  Report Type: Spontaneous
  Country: US (occurrence: US)
  Receive Date: 20131217
  Receipt Date: 20131217
  Transmission Date: 20140711
  Serious: No
  Sender: FDA-Public Use
  Company Number: US-BIOGENIDEC-2013BI114909

PATIENT
  Sex: Male

DRUGS (8)
  1. TECFIDERA [Suspect]
     Indication: MULTIPLE SCLEROSIS
     Dates: start: 201307
  2. ALEVE [Concomitant]
  3. DOXAZOSIN MESYLATE [Concomitant]
  4. ECOTRIN [Concomitant]
  5. LISINOPRIL [Concomitant]
  6. TYLENOL [Concomitant]
  7. VIT B COMPLEX [Concomitant]
  8. VIT D [Concomitant]

REACTIONS (2)
  - Paraesthesia [Unknown]
  - Burning sensation [Unknown]
